FAERS Safety Report 15180230 (Version 1)
Quarter: 2018Q3

REPORT INFORMATION
  Report Type: Spontaneous
  Country: PK (occurrence: PK)
  Receive Date: 20180723
  Receipt Date: 20180723
  Transmission Date: 20181010
  Serious: Yes (Life-Threatening, Hospitalization, Other)
  Sender: FDA-Public Use
  Company Number: PK-ACCORD-069785

PATIENT
  Age: 55 Year
  Sex: Female

DRUGS (1)
  1. CYANOCOBALAMIN. [Suspect]
     Active Substance: CYANOCOBALAMIN
     Indication: ANAEMIA MEGALOBLASTIC
     Route: 030

REACTIONS (1)
  - Anaphylactic reaction [Recovered/Resolved]
